FAERS Safety Report 8507592-1 (Version None)
Quarter: 2012Q3

REPORT INFORMATION
  Report Type: 
  Country: None (occurrence: None)
  Receive Date: 20120713
  Receipt Date: 20120704
  Transmission Date: 20120928
  Serious: Yes (Other)
  Sender: FDA-Public Use
  Company Number: ID-BRISTOL-MYERS SQUIBB COMPANY-16731119

PATIENT
  Age: 14 Year
  Sex: Female

DRUGS (3)
  1. ABILIFY [Suspect]
     Indication: DEREALISATION
     Dosage: DOSAGE WAS TAPERED 4MG FOR 3 MONTHS, 5 MG FOR 2 MONTHS, 1 MG FOR 2 YEARS, LAST NINE MONTHS 2.5-6MG
     Route: 048
     Dates: start: 20090501, end: 20120601
  2. ABILIFY [Suspect]
     Indication: DEPERSONALISATION
     Dosage: DOSAGE WAS TAPERED 4MG FOR 3 MONTHS, 5 MG FOR 2 MONTHS, 1 MG FOR 2 YEARS, LAST NINE MONTHS 2.5-6MG
     Route: 048
     Dates: start: 20090501, end: 20120601
  3. ABILIFY [Suspect]
     Indication: HALLUCINATION
     Dosage: DOSAGE WAS TAPERED 4MG FOR 3 MONTHS, 5 MG FOR 2 MONTHS, 1 MG FOR 2 YEARS, LAST NINE MONTHS 2.5-6MG
     Route: 048
     Dates: start: 20090501, end: 20120601

REACTIONS (2)
  - MYOPIA [None]
  - OPEN ANGLE GLAUCOMA [None]
